FAERS Safety Report 20454933 (Version 1)
Quarter: 2022Q1

REPORT INFORMATION
  Report Type: Spontaneous
  Country: US (occurrence: None)
  Receive Date: 20220209
  Receipt Date: 20220209
  Transmission Date: 20220424
  Serious: Yes (Disabling)
  Sender: FDA-Public Use
  Company Number: None

PATIENT
  Age: 36 Year
  Sex: Male
  Weight: 108 kg

DRUGS (1)
  1. QUETIAPINE [Suspect]
     Active Substance: QUETIAPINE
     Indication: Anxiety disorder
     Dosage: OTHER QUANTITY : 1 TABLET(S);?FREQUENCY : AT BEDTIME;?
     Route: 048
     Dates: start: 20210301, end: 20210324

REACTIONS (7)
  - Insomnia [None]
  - Tremor [None]
  - Panic attack [None]
  - Muscle twitching [None]
  - Disability [None]
  - Central nervous system injury [None]
  - Somnolence [None]

NARRATIVE: CASE EVENT DATE: 20210325
